FAERS Safety Report 7003337-5 (Version None)
Quarter: 2010Q3

REPORT INFORMATION
  Report Type: 
  Country: None (occurrence: None)
  Receive Date: 20100920
  Receipt Date: 20100907
  Transmission Date: 20110219
  Serious: Yes (Death)
  Sender: FDA-Public Use
  Company Number: CI-WATSON-2010-12176

PATIENT
  Age: 53 Year
  Sex: Male

DRUGS (4)
  1. ISONIAZID [Suspect]
     Indication: DISSEMINATED TUBERCULOSIS
     Dosage: UNK
     Dates: start: 20060520
  2. RIFAMPICIN [Suspect]
     Indication: DISSEMINATED TUBERCULOSIS
     Dosage: UNK
     Dates: start: 20060520
  3. PYRAZINAMIDE [Suspect]
     Indication: DISSEMINATED TUBERCULOSIS
     Dosage: UNK
     Dates: start: 20060520
  4. ETHAMBUTOL HYDROCHLORIDE [Suspect]
     Indication: DISSEMINATED TUBERCULOSIS
     Dosage: UNK
     Dates: start: 20060520

REACTIONS (2)
  - CIRCULATORY COLLAPSE [None]
  - TOXIC EPIDERMAL NECROLYSIS [None]
